FAERS Safety Report 14646827 (Version 2)
Quarter: 2018Q1

REPORT INFORMATION
  Report Type: Spontaneous
  Country: JP (occurrence: JP)
  Receive Date: 20180316
  Receipt Date: 20180323
  Transmission Date: 20180509
  Serious: Yes (Death, Life-Threatening)
  Sender: FDA-Public Use
  Company Number: JP-ROCHE-2066065

PATIENT
  Age: 83 Year
  Sex: Male
  Weight: 52 kg

DRUGS (6)
  1. IRINOTECAN HYDROCHLORIDE. [Suspect]
     Active Substance: IRINOTECAN HYDROCHLORIDE
     Indication: RECTAL CANCER
     Dosage: DOSE INTERVAL UNCERTAINTY
     Route: 041
     Dates: start: 20171215, end: 20171215
  2. LAFUTIDINE [Concomitant]
     Active Substance: LAFUTIDINE
     Route: 048
     Dates: start: 20171215, end: 20171217
  3. XELODA [Suspect]
     Active Substance: CAPECITABINE
     Indication: RECTAL CANCER
     Dosage: 2 WEEKS ADMINISTRATION FOLLOWED BY 1 WEEK REST
     Route: 048
     Dates: start: 20171215, end: 20171219
  4. AVASTIN [Suspect]
     Active Substance: BEVACIZUMAB
     Indication: RECTAL CANCER
     Dosage: DOSE INTERVAL UNCERTAINTY
     Route: 041
     Dates: start: 20171215, end: 20171215
  5. TSUMURA HANGESHASHINTO [Concomitant]
     Active Substance: HERBALS
     Route: 048
     Dates: start: 20171215, end: 20171217
  6. REBAMIPIDE [Concomitant]
     Active Substance: REBAMIPIDE
     Route: 048
     Dates: start: 20171215, end: 20171217

REACTIONS (8)
  - Pneumonia [Unknown]
  - Sepsis [Unknown]
  - Cardiac failure congestive [Unknown]
  - Acute respiratory distress syndrome [Unknown]
  - Anaemia [Unknown]
  - Disseminated intravascular coagulation [Unknown]
  - Rectal cancer [Fatal]
  - Febrile neutropenia [Fatal]

NARRATIVE: CASE EVENT DATE: 20171225
